FAERS Safety Report 20571114 (Version 3)
Quarter: 2022Q3

REPORT INFORMATION
  Report Type: Spontaneous
  Country: US (occurrence: US)
  Receive Date: 20220309
  Receipt Date: 20220923
  Transmission Date: 20221026
  Serious: No
  Sender: FDA-Public Use
  Company Number: US-PHARMAESSENTIA CORPORATION-US-2022-PEC-000500

PATIENT

DRUGS (6)
  1. BESREMI [Suspect]
     Active Substance: ROPEGINTERFERON ALFA-2B-NJFT
     Indication: Polycythaemia vera
     Dosage: 100 MICROGRAM, Q2W
     Route: 058
     Dates: start: 20220128
  2. BESREMI [Suspect]
     Active Substance: ROPEGINTERFERON ALFA-2B-NJFT
     Dosage: 200 MICROGRAM, Q2W
     Route: 058
  3. BESREMI [Suspect]
     Active Substance: ROPEGINTERFERON ALFA-2B-NJFT
     Dosage: 250 MCG, Q2W (250-350MCG EVERY 2 WEEKS)
     Route: 058
  4. BESREMI [Suspect]
     Active Substance: ROPEGINTERFERON ALFA-2B-NJFT
     Dosage: 375 MCG, Q2W
     Route: 058
  5. BESREMI [Suspect]
     Active Substance: ROPEGINTERFERON ALFA-2B-NJFT
     Dosage: 400 MCG, Q2W
     Route: 058
  6. BESREMI [Suspect]
     Active Substance: ROPEGINTERFERON ALFA-2B-NJFT
     Dosage: UNK
     Route: 065
     Dates: end: 20220831

REACTIONS (42)
  - Gingival disorder [Unknown]
  - Exostosis [Not Recovered/Not Resolved]
  - Unevaluable event [Unknown]
  - Skin burning sensation [Not Recovered/Not Resolved]
  - Neutrophil count abnormal [Unknown]
  - Neuralgia [Not Recovered/Not Resolved]
  - Heart rate increased [Unknown]
  - Anxiety [Unknown]
  - Drug ineffective [Unknown]
  - Feeling hot [Unknown]
  - Parosmia [Not Recovered/Not Resolved]
  - Ill-defined disorder [Unknown]
  - Pain of skin [Unknown]
  - Feeling abnormal [Not Recovered/Not Resolved]
  - Vitreous floaters [Unknown]
  - Odynophagia [Unknown]
  - Adverse event [Unknown]
  - Haemoglobin abnormal [Unknown]
  - Red blood cell count increased [Unknown]
  - Platelet count increased [Unknown]
  - White blood cell count increased [Unknown]
  - Off label use [Unknown]
  - Haematocrit increased [Not Recovered/Not Resolved]
  - Stress [Unknown]
  - Administration site photosensitivity reaction [Unknown]
  - Depressed mood [Not Recovered/Not Resolved]
  - Thirst [Unknown]
  - Blood glucose increased [Recovered/Resolved]
  - Dizziness [Unknown]
  - Noninfective gingivitis [Unknown]
  - Gingival pain [Unknown]
  - Gingival bleeding [Unknown]
  - Gingival swelling [Unknown]
  - Gingival recession [Unknown]
  - Oropharyngeal pain [Not Recovered/Not Resolved]
  - Condition aggravated [Not Recovered/Not Resolved]
  - Headache [Unknown]
  - Back pain [Not Recovered/Not Resolved]
  - Dry eye [Unknown]
  - Malaise [Unknown]
  - Fatigue [Not Recovered/Not Resolved]
  - Hypersomnia [Unknown]

NARRATIVE: CASE EVENT DATE: 20220209
